FAERS Safety Report 5418387-X (Version None)
Quarter: 2007Q3

REPORT INFORMATION
  Report Type: 
  Country: None (occurrence: None)
  Receive Date: 20070817
  Receipt Date: 20070813
  Transmission Date: 20080115
  Serious: Yes (Life-Threatening, Disabling, Other)
  Sender: FDA-Public Use
  Company Number: GB-BRISTOL-MYERS SQUIBB COMPANY-13879721

PATIENT
  Age: 68 Year
  Sex: Female
  Weight: 112 kg

DRUGS (13)
  1. NADOLOL [Suspect]
     Route: 048
  2. EXENATIDE [Suspect]
     Route: 058
     Dates: start: 20070726
  3. ADCAL-D3 [Concomitant]
  4. ASPIRIN [Concomitant]
     Route: 048
  5. ATORVASTATIN CALCIUM [Concomitant]
     Route: 048
  6. CODEINE PHOSPHATE AND ACETAMINOPHEN [Concomitant]
  7. EZETIMIBE [Concomitant]
     Route: 048
  8. FERROUS SULFATE [Concomitant]
     Route: 048
  9. HYDROXOCOBALAMIN [Concomitant]
     Route: 030
  10. LATANOPROST [Concomitant]
     Route: 047
  11. LISINOPRIL [Concomitant]
     Route: 048
  12. QUININE [Concomitant]
  13. WARFARIN [Concomitant]
     Route: 048

REACTIONS (2)
  - CIRCULATORY COLLAPSE [None]
  - MALAISE [None]
